FAERS Safety Report 25747547 (Version 4)
Quarter: 2025Q4

REPORT INFORMATION
  Report Type: Spontaneous
  Country: US (occurrence: US)
  Receive Date: 20250901
  Receipt Date: 20251011
  Transmission Date: 20260119
  Serious: No
  Sender: DAIICHI
  Company Number: US-DSJP-DS-2025-161632-US

PATIENT
  Sex: Male

DRUGS (1)
  1. TURALIO [Suspect]
     Active Substance: PEXIDARTINIB HYDROCHLORIDE
     Indication: Giant cell tumour of tendon sheath
     Dosage: 250 MG, BID
     Route: 048

REACTIONS (2)
  - Hair colour changes [Not Recovered/Not Resolved]
  - Pruritus [Not Recovered/Not Resolved]
